FAERS Safety Report 12442804 (Version 17)
Quarter: 2017Q4

REPORT INFORMATION
  Report Type: Report from Study
  Country: IQ (occurrence: IQ)
  Receive Date: 20160607
  Receipt Date: 20171225
  Transmission Date: 20180320
  Serious: Yes (Other)
  Sender: FDA-Public Use
  Company Number: PHHY2015IQ091436

PATIENT
  Age: 45 Year
  Sex: Female

DRUGS (1)
  1. TASIGNA [Suspect]
     Active Substance: NILOTINIB
     Indication: CHRONIC MYELOID LEUKAEMIA
     Dosage: 800 MG, QD
     Route: 048
     Dates: start: 201506

REACTIONS (53)
  - Hepatic steatosis [Not Recovered/Not Resolved]
  - Renal colic [Not Recovered/Not Resolved]
  - Eye oedema [Not Recovered/Not Resolved]
  - Tachycardia [Recovered/Resolved]
  - Oropharyngeal pain [Unknown]
  - Decreased appetite [Not Recovered/Not Resolved]
  - Furuncle [Not Recovered/Not Resolved]
  - Anxiety [Not Recovered/Not Resolved]
  - Chromaturia [Unknown]
  - Hypertension [Recovered/Resolved]
  - Night sweats [Unknown]
  - Nephrolithiasis [Recovering/Resolving]
  - Haematuria [Not Recovered/Not Resolved]
  - Nausea [Not Recovered/Not Resolved]
  - Nervousness [Not Recovered/Not Resolved]
  - Constipation [Not Recovered/Not Resolved]
  - Lip erythema [Not Recovered/Not Resolved]
  - Haematuria [Recovered/Resolved]
  - Abdominal distension [Unknown]
  - Arthralgia [Not Recovered/Not Resolved]
  - Hyperglycaemia [Recovered/Resolved]
  - Hot flush [Unknown]
  - Oedema [Not Recovered/Not Resolved]
  - Flank pain [Unknown]
  - Abdominal pain [Not Recovered/Not Resolved]
  - Rash [Not Recovered/Not Resolved]
  - Libido decreased [Not Recovered/Not Resolved]
  - Urinary tract infection [Recovered/Resolved]
  - Pyrexia [Not Recovered/Not Resolved]
  - Erythema [Not Recovered/Not Resolved]
  - Pain [Unknown]
  - Urinary tract infection [Unknown]
  - Eye pain [Not Recovered/Not Resolved]
  - Visual acuity reduced [Recovering/Resolving]
  - Incorrect drug administration duration [Unknown]
  - Mental impairment [Unknown]
  - Dermatitis allergic [Not Recovered/Not Resolved]
  - Abdominal distension [Recovered/Resolved]
  - Splenomegaly [Not Recovered/Not Resolved]
  - Hyperglycaemia [Recovered/Resolved]
  - Blood calcium decreased [Unknown]
  - Anal abscess [Not Recovered/Not Resolved]
  - Furuncle [Recovered/Resolved]
  - Haemoglobin decreased [Not Recovered/Not Resolved]
  - Fatigue [Not Recovered/Not Resolved]
  - Cytogenetic analysis abnormal [Unknown]
  - Renal pain [Recovered/Resolved]
  - Loss of libido [Not Recovered/Not Resolved]
  - Dysphagia [Recovering/Resolving]
  - Anaemia [Recovered/Resolved]
  - Alopecia [Not Recovered/Not Resolved]
  - Back pain [Not Recovered/Not Resolved]
  - Mental disorder [Recovering/Resolving]

NARRATIVE: CASE EVENT DATE: 20161024
